FAERS Safety Report 17062197 (Version 1)
Quarter: 2019Q4

REPORT INFORMATION
  Report Type: Spontaneous
  Country: CN (occurrence: CN)
  Receive Date: 20191122
  Receipt Date: 20191122
  Transmission Date: 20200122
  Serious: Yes (Other)
  Sender: FDA-Public Use
  Company Number: CN-DRREDDYS-GPV/CHN/19/0116060

PATIENT
  Age: 68 Year
  Sex: Male
  Weight: 55 kg

DRUGS (3)
  1. XINGZHI [Concomitant]
     Indication: SCHIZOPHRENIA
     Route: 048
     Dates: start: 20191009, end: 20191108
  2. OLANZ [Suspect]
     Active Substance: OLANZAPINE
     Dosage: AT NIGHT
     Route: 048
     Dates: start: 20191027, end: 20191027
  3. OLANZ [Suspect]
     Active Substance: OLANZAPINE
     Indication: SCHIZOPHRENIA
     Dosage: EVERY NIGHT
     Route: 048
     Dates: start: 20191009, end: 20191027

REACTIONS (1)
  - Arrhythmia [Recovering/Resolving]

NARRATIVE: CASE EVENT DATE: 20191027
